FAERS Safety Report 23097439 (Version 1)
Quarter: 2023Q4

REPORT INFORMATION
  Report Type: Spontaneous
  Country: US (occurrence: None)
  Receive Date: 20231023
  Receipt Date: 20231023
  Transmission Date: 20240110
  Serious: Yes (Disabling, Other)
  Sender: FDA-Public Use
  Company Number: None

PATIENT
  Age: 56 Year
  Sex: Male
  Weight: 109.8 kg

DRUGS (3)
  1. CELECOXIB [Suspect]
     Active Substance: CELECOXIB
     Indication: Osteoarthritis
     Dosage: OTHER QUANTITY : 1 CAPSULE(S);?FREQUENCY : DAILY;?
     Route: 048
     Dates: start: 20230406, end: 20231021
  2. CELECOXIB [Suspect]
     Active Substance: CELECOXIB
     Indication: Post procedural complication
  3. CELECOXIB [Suspect]
     Active Substance: CELECOXIB
     Indication: Inflammation

REACTIONS (2)
  - Heart rate increased [None]
  - Hip arthroplasty [None]

NARRATIVE: CASE EVENT DATE: 20231021
